FAERS Safety Report 5743144-4 (Version None)
Quarter: 2008Q2

REPORT INFORMATION
  Report Type: 
  Country: None (occurrence: None)
  Receive Date: 20080519
  Receipt Date: 20080509
  Transmission Date: 20081010
  Serious: Yes (Congenital Anomaly)
  Sender: FDA-Public Use
  Company Number: GB-ABBOTT-08P-167-0451445-00

PATIENT
  Sex: Female
  Weight: 3.44 kg

DRUGS (1)
  1. VALPROIC ACID [Suspect]
     Indication: DRUG EXPOSURE DURING PREGNANCY
     Route: 064

REACTIONS (24)
  - APHASIA [None]
  - ASTIGMATISM [None]
  - COGNITIVE DISORDER [None]
  - CONGENITAL HAIR DISORDER [None]
  - CONGENITAL NOSE MALFORMATION [None]
  - DACRYOSTENOSIS ACQUIRED [None]
  - DEHYDRATION [None]
  - DEVELOPMENTAL DELAY [None]
  - DRUG EXPOSURE DURING PREGNANCY [None]
  - DYSMORPHISM [None]
  - EXPRESSIVE LANGUAGE DISORDER [None]
  - EYE INFECTION [None]
  - FEEDING DISORDER NEONATAL [None]
  - FOETAL ANTICONVULSANT SYNDROME [None]
  - FOOT DEFORMITY [None]
  - HAEMANGIOMA [None]
  - HEARING IMPAIRED [None]
  - JOINT INSTABILITY [None]
  - LEARNING DISORDER [None]
  - LIP DISORDER [None]
  - SKULL MALFORMATION [None]
  - SPEECH DISORDER [None]
  - SPEECH DISORDER DEVELOPMENTAL [None]
  - WEIGHT DECREASE NEONATAL [None]
